FAERS Safety Report 23170957 (Version 1)
Quarter: 2023Q4

REPORT INFORMATION
  Report Type: Spontaneous
  Country: US (occurrence: None)
  Receive Date: 20231109
  Receipt Date: 20231109
  Transmission Date: 20240110
  Serious: Yes (Disabling)
  Sender: FDA-Public Use
  Company Number: None

PATIENT
  Age: 38 Year
  Sex: Male
  Weight: 129.15 kg

DRUGS (9)
  1. PALIPERIDONE [Suspect]
     Active Substance: PALIPERIDONE
     Route: 048
  2. DIVALPROEX SODIUM [Suspect]
     Active Substance: DIVALPROEX SODIUM
     Indication: Mental disorder
     Dosage: FREQUENCY : EVERY 12 HOURS;?
     Route: 048
  3. LITHIUM [Suspect]
     Active Substance: LITHIUM
  4. TRAZODONE [Concomitant]
     Active Substance: TRAZODONE HYDROCHLORIDE
  5. PALIPERIDONE [Concomitant]
     Active Substance: PALIPERIDONE
  6. DIVALPROEX SODIUM [Concomitant]
     Active Substance: DIVALPROEX SODIUM
  7. Benzontropine [Concomitant]
  8. Alkums Anatacids [Concomitant]
  9. PROBIOTICS NOS [Concomitant]
     Active Substance: PROBIOTICS NOS

REACTIONS (15)
  - Gastrooesophageal reflux disease [None]
  - Somnolence [None]
  - Weight increased [None]
  - Tardive dyskinesia [None]
  - Increased appetite [None]
  - Musculoskeletal stiffness [None]
  - Alopecia [None]
  - Constipation [None]
  - Pollakiuria [None]
  - Insomnia [None]
  - Logorrhoea [None]
  - Memory impairment [None]
  - Dry mouth [None]
  - Diarrhoea [None]
  - Restlessness [None]

NARRATIVE: CASE EVENT DATE: 20220201
